FAERS Safety Report 21889603 (Version 1)
Quarter: 2023Q1

REPORT INFORMATION
  Report Type: Report from Study
  Country: US (occurrence: US)
  Receive Date: 20230120
  Receipt Date: 20230120
  Transmission Date: 20230418
  Serious: No
  Sender: FDA-Public Use
  Company Number: US-ABBVIE-4227699

PATIENT
  Age: 82 Year
  Sex: Female

DRUGS (1)
  1. RINVOQ [Suspect]
     Active Substance: UPADACITINIB
     Indication: Rheumatoid arthritis
     Dosage: DRUG STARTED ON 23-DEC-2022.
     Route: 048

REACTIONS (5)
  - Musculoskeletal pain [Unknown]
  - Intervertebral disc protrusion [Unknown]
  - Hypoaesthesia [Not Recovered/Not Resolved]
  - Sciatica [Not Recovered/Not Resolved]
  - Pain in extremity [Unknown]

NARRATIVE: CASE EVENT DATE: 20220728
